FAERS Safety Report 19923873 (Version 1)
Quarter: 2021Q4

REPORT INFORMATION
  Report Type: Spontaneous
  Country: US (occurrence: US)
  Receive Date: 20211005
  Receipt Date: 20211005
  Transmission Date: 20220303
  Serious: Yes (Death)
  Sender: FDA-Public Use
  Company Number: None

PATIENT
  Age: 79 Year
  Sex: Female

DRUGS (1)
  1. SPRYCEL [Suspect]
     Active Substance: DASATINIB
     Indication: Philadelphia positive chronic myeloid leukaemia
     Dosage: ?          OTHER FREQUENCY:SEE B.6(PAGE2);
     Route: 048
     Dates: start: 20210410, end: 20210901

REACTIONS (1)
  - Death [None]

NARRATIVE: CASE EVENT DATE: 20210901
